FAERS Safety Report 12779851 (Version 2)
Quarter: 2016Q3

REPORT INFORMATION
  Report Type: Spontaneous
  Country: US (occurrence: US)
  Receive Date: 20160926
  Receipt Date: 20160927
  Transmission Date: 20161109
  Serious: No
  Sender: FDA-Public Use
  Company Number: US-BAYER-2016-185751

PATIENT
  Age: 60 Year
  Sex: Female
  Weight: 48.98 kg

DRUGS (3)
  1. TASIGNA [Concomitant]
     Active Substance: NILOTINIB
  2. MIRALAX [Suspect]
     Active Substance: POLYETHYLENE GLYCOL 3350
     Indication: CONSTIPATION
     Dosage: 1 DF, QD
     Route: 048
     Dates: end: 20160922
  3. LEVOTHYROXINE. [Concomitant]
     Active Substance: LEVOTHYROXINE

REACTIONS (2)
  - Wrong technique in product usage process [None]
  - Product use issue [None]

NARRATIVE: CASE EVENT DATE: 2016
